FAERS Safety Report 16281936 (Version 3)
Quarter: 2019Q3

REPORT INFORMATION
  Report Type: Spontaneous
  Country: PT (occurrence: PT)
  Receive Date: 20190507
  Receipt Date: 20190723
  Transmission Date: 20191004
  Serious: Yes (Life-Threatening, Hospitalization, Other)
  Sender: FDA-Public Use
  Company Number: PT-MYLANLABS-2019M1040822

PATIENT
  Age: 72 Year
  Sex: Male

DRUGS (1)
  1. IMATINIB. [Suspect]
     Active Substance: IMATINIB MESYLATE
     Indication: CHRONIC MYELOID LEUKAEMIA
     Dosage: UNK
     Route: 065

REACTIONS (8)
  - Pulmonary toxicity [Recovering/Resolving]
  - Respiratory failure [Recovered/Resolved]
  - Toxicity to various agents [Recovering/Resolving]
  - Drug abuse [Unknown]
  - Eczema [Recovered/Resolved]
  - Pulmonary fibrosis [Unknown]
  - Cough [Recovering/Resolving]
  - Overdose [Unknown]
